FAERS Safety Report 6587044-9 (Version None)
Quarter: 2010Q1

REPORT INFORMATION
  Report Type: 
  Country: None (occurrence: None)
  Receive Date: 20100217
  Receipt Date: 20090415
  Transmission Date: 20100710
  Serious: No
  Sender: FDA-Public Use
  Company Number: US-ALLERGAN-0905256US

PATIENT
  Age: 62 Year
  Sex: Female

DRUGS (3)
  1. BOTOX COSMETIC [Suspect]
     Indication: SKIN WRINKLING
     Dosage: 16 UNITS, SINGLE
     Route: 030
     Dates: start: 20080807, end: 20080807
  2. BOTOX COSMETIC [Suspect]
     Dosage: 28 UNITS, SINGLE
     Route: 030
     Dates: start: 20060807, end: 20060807
  3. ACTIVELLA [Concomitant]

REACTIONS (1)
  - ALOPECIA [None]
